FAERS Safety Report 15785877 (Version 1)
Quarter: 2019Q1

REPORT INFORMATION
  Report Type: Spontaneous
  Country: US (occurrence: US)
  Receive Date: 20190101
  Receipt Date: 20190101
  Transmission Date: 20190417
  Serious: Yes (Life-Threatening, Hospitalization)
  Sender: FDA-Public Use
  Company Number: None

PATIENT
  Age: 48 Year
  Sex: Female
  Weight: 60.75 kg

DRUGS (1)
  1. PYRIDOSTIGM 60 MG TAB GLOBAL PHA [Suspect]
     Active Substance: PYRIDOSTIGMINE BROMIDE
     Indication: MYASTHENIA GRAVIS
     Dosage: ?          QUANTITY:.50 TABLET(S);?
     Route: 048
     Dates: start: 20171120, end: 20180210

REACTIONS (10)
  - Pain [None]
  - Diaphragmatic disorder [None]
  - Dyspnoea [None]
  - Loss of consciousness [None]
  - Blindness [None]
  - Paralysis [None]
  - Crying [None]
  - Muscle spasms [None]
  - Eye movement disorder [None]
  - Aphonia [None]

NARRATIVE: CASE EVENT DATE: 20180121
